FAERS Safety Report 21519099 (Version 2)
Quarter: 2022Q4

REPORT INFORMATION
  Report Type: Report from Study
  Country: GB (occurrence: GB)
  Receive Date: 20221028
  Receipt Date: 20221110
  Transmission Date: 20230113
  Serious: Yes (Hospitalization, Other)
  Sender: FDA-Public Use
  Company Number: GB-TAKEDA-2022TUS071795

PATIENT
  Age: 67 Year
  Sex: Male

DRUGS (1)
  1. VEDOLIZUMAB [Suspect]
     Active Substance: VEDOLIZUMAB
     Indication: Colitis ulcerative
     Dosage: 108 MILLIGRAM, Q2WEEKS
     Route: 058

REACTIONS (4)
  - Enterovesical fistula [Unknown]
  - Sepsis [Unknown]
  - Malaise [Not Recovered/Not Resolved]
  - Cystitis escherichia [Not Recovered/Not Resolved]
